FAERS Safety Report 15945055 (Version 1)
Quarter: 2019Q1

REPORT INFORMATION
  Report Type: Report from Study
  Country: US (occurrence: US)
  Receive Date: 20190211
  Receipt Date: 20190211
  Transmission Date: 20190417
  Serious: Yes (Other)
  Sender: FDA-Public Use
  Company Number: US-SA-2019SA030521

PATIENT
  Age: 60 Year
  Sex: Male

DRUGS (1)
  1. INSULIN GLARGINE [Suspect]
     Active Substance: INSULIN GLARGINE
     Indication: TYPE 2 DIABETES MELLITUS
     Dosage: 136 U
     Dates: start: 20190116

REACTIONS (6)
  - Retinal haemorrhage [Unknown]
  - Vision blurred [Unknown]
  - Decreased appetite [Unknown]
  - Blood glucose decreased [Unknown]
  - Neuropathy peripheral [Unknown]
  - Cataract operation [Unknown]
